FAERS Safety Report 11693232 (Version 2)
Quarter: 2015Q4

REPORT INFORMATION
  Report Type: Report from Study
  Country: GB (occurrence: GB)
  Receive Date: 20151103
  Receipt Date: 20151123
  Transmission Date: 20160304
  Serious: Yes (Other)
  Sender: FDA-Public Use
  Company Number: GB-GLAXOSMITHKLINE-GB2015155581

PATIENT
  Age: 39 Year
  Sex: Female

DRUGS (4)
  1. CILEST [Concomitant]
     Active Substance: ETHINYL ESTRADIOL\NORGESTIMATE
     Indication: CONTRACEPTION
     Dosage: 35/250 004 OD
     Route: 048
     Dates: start: 20030925, end: 20151027
  2. AMOXICILLIN. [Suspect]
     Active Substance: AMOXICILLIN
     Indication: LOWER RESPIRATORY TRACT INFECTION
     Dosage: 500 MG Q8H
     Route: 048
     Dates: start: 20151015, end: 20151021
  3. CLENIL [Concomitant]
     Active Substance: BECLOMETHASONE DIPROPIONATE
     Indication: ASTHMA
     Dosage: 200 003 BID
     Route: 055
     Dates: start: 20140512, end: 20141127
  4. BECLOMETHASONE DIPROPIONATE + FORMOTEROL [Suspect]
     Active Substance: BECLOMETHASONE DIPROPIONATE\FORMOTEROL
     Indication: ASTHMA
     Dosage: 100/6 UG BID
     Route: 055
     Dates: start: 20141127

REACTIONS (1)
  - Unintended pregnancy [Not Recovered/Not Resolved]

NARRATIVE: CASE EVENT DATE: 20151027
